FAERS Safety Report 18427502 (Version 1)
Quarter: 2020Q4

REPORT INFORMATION
  Report Type: Spontaneous
  Country: GB (occurrence: GB)
  Receive Date: 20201026
  Receipt Date: 20201026
  Transmission Date: 20210114
  Serious: Yes (Hospitalization, Other)
  Sender: FDA-Public Use
  Company Number: GB-TEVA-2020-GB-1842176

PATIENT
  Age: 25 Year
  Sex: Male

DRUGS (17)
  1. DOXORUBICIN [Suspect]
     Active Substance: DOXORUBICIN
     Indication: T-CELL LYMPHOMA
     Dosage: CHOP REGIMEN
     Route: 065
     Dates: start: 2011, end: 2011
  2. DOXORUBICIN [Suspect]
     Active Substance: DOXORUBICIN
     Dosage: CODOX-M IVAC REGIMEN
     Route: 065
     Dates: start: 2011, end: 201109
  3. PREGABALIN. [Suspect]
     Active Substance: PREGABALIN
     Indication: ANALGESIC THERAPY
     Route: 065
  4. CLONAZEPAM. [Suspect]
     Active Substance: CLONAZEPAM
     Indication: ANALGESIC THERAPY
     Route: 065
  5. AMITRIPTYLINE [Suspect]
     Active Substance: AMITRIPTYLINE
     Indication: ANALGESIC THERAPY
     Route: 065
  6. DOTHIEPIN [Suspect]
     Active Substance: DOTHIEPIN\DOTHIEPIN HYDROCHLORIDE
     Indication: ANALGESIC THERAPY
     Route: 065
  7. IFOSFAMIDE. [Suspect]
     Active Substance: IFOSFAMIDE
     Indication: T-CELL LYMPHOMA
     Dosage: CODOX-M IVAC REGIMEN
     Route: 065
     Dates: start: 2011, end: 201109
  8. VINCRISTINE [Suspect]
     Active Substance: VINCRISTINE
     Dosage: CODOX-M IVAC REGIMEN
     Route: 065
     Dates: start: 2011, end: 201109
  9. CYTARABINE. [Suspect]
     Active Substance: CYTARABINE
     Indication: T-CELL LYMPHOMA
     Dosage: CODOX-M IVAC REGIMEN
     Route: 065
     Dates: start: 2011, end: 201109
  10. METHOTREXATE. [Suspect]
     Active Substance: METHOTREXATE
     Indication: T-CELL LYMPHOMA
     Dosage: CODOX-M IVAC REGIMEN
     Route: 065
     Dates: start: 2011, end: 201109
  11. CYCLOPHOSPHAMIDE. [Suspect]
     Active Substance: CYCLOPHOSPHAMIDE
     Indication: T-CELL LYMPHOMA
     Dosage: CHOP-REGIMEN
     Route: 065
     Dates: start: 2011, end: 2011
  12. CYCLOPHOSPHAMIDE. [Suspect]
     Active Substance: CYCLOPHOSPHAMIDE
     Dosage: CODOX-M IVAC REGIMEN
     Route: 065
     Dates: start: 2011, end: 201109
  13. ETOPOSIDE. [Suspect]
     Active Substance: ETOPOSIDE
     Indication: T-CELL LYMPHOMA
     Dosage: CODOX-M IVAC REGIMEN
     Route: 065
     Dates: start: 2011, end: 201109
  14. VINCRISTINE [Suspect]
     Active Substance: VINCRISTINE
     Indication: T-CELL LYMPHOMA
     Dosage: CHOP-REGIMEN
     Route: 065
     Dates: start: 2011, end: 2011
  15. OXYCODONE [Suspect]
     Active Substance: OXYCODONE
     Indication: ANALGESIC THERAPY
     Route: 065
  16. PREDNISOLONE. [Suspect]
     Active Substance: PREDNISOLONE
     Indication: T-CELL LYMPHOMA
     Dosage: CHOP-REGIMEN
     Route: 065
     Dates: start: 2011, end: 2011
  17. OXYNORM [Suspect]
     Active Substance: OXYCODONE HYDROCHLORIDE
     Indication: ANALGESIC THERAPY
     Route: 065

REACTIONS (7)
  - Poor quality sleep [Unknown]
  - Medication overuse headache [Unknown]
  - Impaired work ability [Unknown]
  - Depression [Unknown]
  - Frustration tolerance decreased [Unknown]
  - Loss of personal independence in daily activities [Not Recovered/Not Resolved]
  - Osteonecrosis [Not Recovered/Not Resolved]

NARRATIVE: CASE EVENT DATE: 2012
